FAERS Safety Report 7706979-4 (Version None)
Quarter: 2011Q3

REPORT INFORMATION
  Report Type: 
  Country: None (occurrence: None)
  Receive Date: 20110824
  Receipt Date: 20110822
  Transmission Date: 20111222
  Serious: No
  Sender: FDA-Public Use
  Company Number: US-PFIZER INC-2011194020

PATIENT
  Sex: Male
  Weight: 93 kg

DRUGS (1)
  1. ALDACTONE [Suspect]
     Indication: DIALYSIS
     Dosage: 25 MG, 1X/DAY
     Route: 048
     Dates: start: 20100101, end: 20110801

REACTIONS (1)
  - BREAST ENLARGEMENT [None]
